FAERS Safety Report 9019321 (Version 1)
Quarter: 2013Q1

REPORT INFORMATION
  Report Type: Spontaneous
  Country: US (occurrence: US)
  Receive Date: 20130118
  Receipt Date: 20130118
  Transmission Date: 20140127
  Serious: Yes (Other)
  Sender: FDA-Public Use
  Company Number: US-TEVA-381332USA

PATIENT
  Sex: 0

DRUGS (1)
  1. COPAXONE [Suspect]
     Indication: MULTIPLE SCLEROSIS

REACTIONS (11)
  - Multiple sclerosis relapse [Unknown]
  - Injection site pain [Unknown]
  - Immediate post-injection reaction [Unknown]
  - Flushing [Unknown]
  - Dyspnoea [Unknown]
  - Palpitations [Unknown]
  - Injection site pruritus [Unknown]
  - Injection site erythema [Unknown]
  - Injection site urticaria [Unknown]
  - Injection site mass [Unknown]
  - Injection site induration [Unknown]
